FAERS Safety Report 5467684-0 (Version None)
Quarter: 2007Q3

REPORT INFORMATION
  Report Type: 
  Country: None (occurrence: None)
  Receive Date: 20070921
  Receipt Date: 20070905
  Transmission Date: 20080115
  Serious: Yes (Other)
  Sender: FDA-Public Use
  Company Number: 2007RR-09871

PATIENT
  Age: 85 Year
  Sex: Male

DRUGS (4)
  1. SIMVASTATIN 40MG TABLETS (SIMAVASTATIN) UNKNOWN [Suspect]
     Indication: HYPERCHOLESTEROLAEMIA
     Dosage: 40 MG
  2. FUROSEMIDE [Concomitant]
  3. PLAVIX (CLOPIDOGREL HYDROGEN SULPHATE) [Concomitant]
  4. RAMIPRIL 5 MG CAPSULES (RAMIPRIL) [Concomitant]

REACTIONS (3)
  - DEHYDRATION [None]
  - MALAISE [None]
  - VOMITING [None]
